FAERS Safety Report 19145471 (Version 1)
Quarter: 2021Q2

REPORT INFORMATION
  Report Type: Spontaneous
  Country: US (occurrence: US)
  Receive Date: 20210416
  Receipt Date: 20210416
  Transmission Date: 20210717
  Serious: No
  Sender: FDA-Public Use
  Company Number: US-DRREDDYS-USA/USA/21/0133839

PATIENT
  Age: 23 Year
  Sex: Male

DRUGS (1)
  1. ZENATANE [Suspect]
     Active Substance: ISOTRETINOIN
     Indication: PRODUCT USED FOR UNKNOWN INDICATION
     Dosage: RMA ISSUE DATE: 8/27/2020 4:48:07 PM,10/2/2020 1:44:32 PM,11/3/2020 10:15:31 AM,12/1/2020 11:13:23 A
     Route: 048

REACTIONS (1)
  - Liver function test increased [Unknown]
